FAERS Safety Report 24291397 (Version 1)
Quarter: 2024Q3

REPORT INFORMATION
  Report Type: Spontaneous
  Country: US (occurrence: None)
  Receive Date: 20240906
  Receipt Date: 20240906
  Transmission Date: 20241016
  Serious: No
  Sender: DOMPE FARMACEUTICI
  Company Number: US-FARMAPROD-202308-2463

PATIENT
  Sex: Female
  Weight: 61.23 kg

DRUGS (25)
  1. OXERVATE [Suspect]
     Active Substance: CENEGERMIN-BKBJ
     Indication: Neurotrophic keratopathy
     Route: 047
     Dates: start: 20220718, end: 20220912
  2. OXERVATE [Suspect]
     Active Substance: CENEGERMIN-BKBJ
     Route: 047
     Dates: start: 20230531
  3. DULOXETINE HYDROCHLORIDE [Concomitant]
     Active Substance: DULOXETINE HYDROCHLORIDE
  4. LEVOCETIRIZINE DIHYDROCHLORIDE [Concomitant]
     Active Substance: LEVOCETIRIZINE DIHYDROCHLORIDE
  5. BENZONATATE [Concomitant]
     Active Substance: BENZONATATE
  6. SYSTANE (HYPROMELLOSE 2910 (4000 MPA.S)) [Concomitant]
     Active Substance: HYPROMELLOSE 2910 (4000 MPA.S)
     Dosage: 3 %-94 %
  7. LINZESS [Concomitant]
     Active Substance: LINACLOTIDE
  8. ARMOUR THYROID [Concomitant]
     Active Substance: THYROID, PORCINE
  9. ARMOUR THYROID [Concomitant]
     Active Substance: THYROID, PORCINE
  10. TRAMADOL HCL [Concomitant]
     Active Substance: TRAMADOL HYDROCHLORIDE
  11. ALBUTEROL SULFATE [Concomitant]
     Active Substance: ALBUTEROL SULFATE
     Dosage: HYDROFLUOROALKANE.
  12. NOVOLOG [Concomitant]
     Active Substance: INSULIN ASPART
     Dosage: FLEXPEN 100/ML INSULIN PEN
  13. REFRESH TEARS [Concomitant]
     Active Substance: CARBOXYMETHYLCELLULOSE SODIUM
  14. TRESIBA [Concomitant]
     Active Substance: INSULIN DEGLUDEC
     Dosage: FLEXTOUCH U-100
  15. AMLODIPINE BESYLATE [Concomitant]
     Active Substance: AMLODIPINE BESYLATE
  16. CRESTOR [Concomitant]
     Active Substance: ROSUVASTATIN CALCIUM
  17. METOPROLOL SUCCINATE [Concomitant]
     Active Substance: METOPROLOL SUCCINATE
     Dosage: EXTENDED RELEASE 24 HOURS.
  18. VITAMIN D3 [Concomitant]
     Active Substance: CHOLECALCIFEROL
  19. FLOVENT [Concomitant]
     Active Substance: FLUTICASONE PROPIONATE
     Dosage: HYDROFLUOROALKANE, AEROSOL WITH ADAPTER.
  20. NITROSTAT [Concomitant]
     Active Substance: NITROGLYCERIN
  21. LOSARTAN POTASSIUM [Concomitant]
     Active Substance: LOSARTAN POTASSIUM
  22. ASPIRIN [Concomitant]
     Active Substance: ASPIRIN
  23. LUMIGAN [Concomitant]
     Active Substance: BIMATOPROST
  24. MOXIFLOXACIN [Concomitant]
     Active Substance: MOXIFLOXACIN
  25. BRIMONIDINE TARTRATE [Concomitant]
     Active Substance: BRIMONIDINE TARTRATE

REACTIONS (1)
  - Product administration error [Unknown]
